FAERS Safety Report 5311545-4 (Version None)
Quarter: 2007Q2

REPORT INFORMATION
  Report Type: 
  Country: None (occurrence: None)
  Receive Date: 20070430
  Receipt Date: 20070427
  Transmission Date: 20071010
  Serious: Yes (Other)
  Sender: FDA-Public Use
  Company Number: JP-JPN-A200702030

PATIENT
  Age: 7 Year
  Sex: Female

DRUGS (1)
  1. ZOVIRAX [Suspect]
     Indication: VARICELLA
     Dosage: 400MG PER DAY
     Route: 048
     Dates: start: 20060616, end: 20060616

REACTIONS (1)
  - RESPIRATORY DEPRESSION [None]
